FAERS Safety Report 12403216 (Version 1)
Quarter: 2016Q2

REPORT INFORMATION
  Report Type: Report from Study
  Country: US (occurrence: US)
  Receive Date: 20160525
  Receipt Date: 20160525
  Transmission Date: 20160815
  Serious: Yes (Death)
  Sender: FDA-Public Use
  Company Number: US-ACTELION-A-NJ2015-123233

PATIENT
  Age: 36 Year
  Sex: Female

DRUGS (2)
  1. REMODULIN [Concomitant]
     Active Substance: TREPROSTINIL
     Dosage: UNK
     Dates: start: 201508
  2. MACITENTAN [Suspect]
     Active Substance: MACITENTAN
     Indication: PULMONARY HYPERTENSION
     Dosage: 10 MG, QD
     Route: 048
     Dates: start: 20150608, end: 20160515

REACTIONS (9)
  - Death [Fatal]
  - Infusion site erythema [Unknown]
  - Syncope [Unknown]
  - Infusion site swelling [Unknown]
  - Tremor [Unknown]
  - Infusion site pain [Unknown]
  - Infusion site discomfort [Unknown]
  - Pain in jaw [Unknown]
  - Asthenia [Unknown]

NARRATIVE: CASE EVENT DATE: 20160515
